FAERS Safety Report 7085384-0 (Version None)
Quarter: 2010Q4

REPORT INFORMATION
  Report Type: 
  Country: None (occurrence: None)
  Receive Date: 20101005
  Receipt Date: 20100202
  Transmission Date: 20110411
  Serious: Yes (Other)
  Sender: FDA-Public Use
  Company Number: US-WYE-H13415710

PATIENT
  Age: 59 Year
  Sex: Male
  Weight: 116.3 kg

DRUGS (1)
  1. RAPAMUNE [Suspect]
     Dosage: 3 MG 1X PER 1 DAY, ORAL
     Route: 048
     Dates: start: 20091217

REACTIONS (1)
  - DYSPNOEA [None]
